FAERS Safety Report 23705297 (Version 2)
Quarter: 2024Q3

REPORT INFORMATION
  Report Type: Spontaneous
  Country: JP (occurrence: JP)
  Receive Date: 20240404
  Receipt Date: 20240806
  Transmission Date: 20241017
  Serious: Yes (Death, Other)
  Sender: GILEAD
  Company Number: JP-GILEAD-2024-0667674

PATIENT
  Age: 9 Decade
  Sex: Male

DRUGS (2)
  1. VEKLURY [Suspect]
     Active Substance: REMDESIVIR
     Indication: COVID-19 pneumonia
     Dosage: UNK
     Route: 065
  2. ACTEMRA [Concomitant]
     Active Substance: TOCILIZUMAB
     Dosage: UNK

REACTIONS (1)
  - Death [Fatal]
